FAERS Safety Report 8302555-3 (Version None)
Quarter: 2012Q2

REPORT INFORMATION
  Report Type: 
  Country: None (occurrence: None)
  Receive Date: 20120420
  Receipt Date: 20120413
  Transmission Date: 20120825
  Serious: Yes (Death, Hospitalization)
  Sender: FDA-Public Use
  Company Number: JP-ROCHE-668907

PATIENT
  Age: 8 Year
  Sex: Male

DRUGS (7)
  1. BACTRIM [Concomitant]
     Indication: PROPHYLAXIS
     Route: 048
  2. ONON [Concomitant]
     Indication: PROPHYLAXIS
     Route: 048
  3. LANSOPRAZOLE [Concomitant]
     Indication: GASTRIC ULCER
     Route: 048
  4. PROGRAF [Concomitant]
     Dates: start: 20091001, end: 20091111
  5. MABTHERA [Suspect]
     Indication: LIVER TRANSPLANT
     Route: 042
     Dates: start: 20090902, end: 20090902
  6. MONILAC [Concomitant]
     Indication: HYPERAMMONAEMIA
     Route: 048
  7. METHYLPREDNISOLONE SODIUM SUCCINATE [Concomitant]
     Dates: start: 20091001, end: 20091109

REACTIONS (1)
  - RESPIRATORY DISORDER [None]
